FAERS Safety Report 20796948 (Version 1)
Quarter: 2022Q2

REPORT INFORMATION
  Report Type: Spontaneous
  Country: AT (occurrence: AT)
  Receive Date: 20220506
  Receipt Date: 20220506
  Transmission Date: 20220720
  Serious: Yes (Other)
  Sender: FDA-Public Use
  Company Number: AT-NOVARTISPH-NVSC2022AT104044

PATIENT
  Sex: Female

DRUGS (1)
  1. PIQRAY [Suspect]
     Active Substance: ALPELISIB
     Indication: Product used for unknown indication
     Dosage: 150 MG
     Route: 065
     Dates: start: 20220415, end: 20220429

REACTIONS (5)
  - Renal failure [Unknown]
  - Swelling face [Unknown]
  - Rash [Unknown]
  - Hypersensitivity [Unknown]
  - Diarrhoea [Unknown]
